FAERS Safety Report 24030221 (Version 1)
Quarter: 2024Q2

REPORT INFORMATION
  Report Type: Report from Study
  Country: US (occurrence: US)
  Receive Date: 20240628
  Receipt Date: 20240628
  Transmission Date: 20240716
  Serious: No
  Sender: FDA-Public Use
  Company Number: US-JNJFOC-20230336313

PATIENT
  Age: 51 Year
  Sex: Male

DRUGS (1)
  1. REMICADE [Suspect]
     Active Substance: INFLIXIMAB
     Indication: Psoriasis
     Route: 041
     Dates: start: 20071205, end: 20091029

REACTIONS (2)
  - Neoplasm of cornea unspecified malignancy [Unknown]
  - Rectal polyp [Unknown]

NARRATIVE: CASE EVENT DATE: 20091013
